FAERS Safety Report 8382060-9 (Version None)
Quarter: 2012Q2

REPORT INFORMATION
  Report Type: 
  Country: None (occurrence: None)
  Receive Date: 20120523
  Receipt Date: 20120523
  Transmission Date: 20120825
  Serious: Yes (Other)
  Sender: FDA-Public Use
  Company Number: None

PATIENT
  Age: 39 Year
  Sex: Female
  Weight: 104.3273 kg

DRUGS (1)
  1. LUPRON DEPOT [Suspect]
     Indication: UTERINE LEIOMYOMA
     Dosage: 3.75MG EVERY 30 DAYS IM
     Route: 030
     Dates: start: 20120320, end: 20120420

REACTIONS (7)
  - NIGHT SWEATS [None]
  - BLOOD GLUCOSE INCREASED [None]
  - MEMORY IMPAIRMENT [None]
  - PAIN [None]
  - BLOOD GLUCOSE DECREASED [None]
  - HEADACHE [None]
  - INSOMNIA [None]
